FAERS Safety Report 15026998 (Version 1)
Quarter: 2018Q2

REPORT INFORMATION
  Report Type: Spontaneous
  Country: US (occurrence: US)
  Receive Date: 20180619
  Receipt Date: 20180619
  Transmission Date: 20180711
  Serious: Yes (Other)
  Sender: FDA-Public Use
  Company Number: US-CIPLA LTD.-2018US19149

PATIENT

DRUGS (10)
  1. FOLINIC ACID [Suspect]
     Active Substance: LEUCOVORIN
     Indication: SOLID PSEUDOPAPILLARY TUMOUR OF THE PANCREAS
     Dosage: UNK
     Route: 065
  2. OXALIPLATIN. [Suspect]
     Active Substance: OXALIPLATIN
     Indication: SOLID PSEUDOPAPILLARY TUMOUR OF THE PANCREAS
     Dosage: UNK
     Route: 065
  3. GEMCITABINE [Suspect]
     Active Substance: GEMCITABINE\GEMCITABINE HYDROCHLORIDE
     Indication: METASTASES TO LIVER
     Dosage: UNK
     Route: 065
  4. OXALIPLATIN. [Suspect]
     Active Substance: OXALIPLATIN
     Indication: METASTASES TO LIVER
  5. AVASTIN                            /00848101/ [Suspect]
     Active Substance: SIMVASTATIN
     Indication: SOLID PSEUDOPAPILLARY TUMOUR OF THE PANCREAS
     Dosage: UNK
     Route: 065
  6. FOLINIC ACID [Suspect]
     Active Substance: LEUCOVORIN
     Indication: METASTASES TO LIVER
  7. FLUOROURACIL. [Suspect]
     Active Substance: FLUOROURACIL
     Indication: SOLID PSEUDOPAPILLARY TUMOUR OF THE PANCREAS
     Dosage: UNK
     Route: 065
  8. FLUOROURACIL. [Suspect]
     Active Substance: FLUOROURACIL
     Indication: METASTASES TO LIVER
  9. GEMCITABINE [Suspect]
     Active Substance: GEMCITABINE\GEMCITABINE HYDROCHLORIDE
     Indication: SOLID PSEUDOPAPILLARY TUMOUR OF THE PANCREAS
     Dosage: UNK, 34 COURSES
     Route: 065
  10. CISPLATIN. [Suspect]
     Active Substance: CISPLATIN
     Indication: SOLID PSEUDOPAPILLARY TUMOUR OF THE PANCREAS
     Dosage: UNK, 34 COURSES
     Route: 065

REACTIONS (3)
  - Malignant neoplasm progression [Not Recovered/Not Resolved]
  - Metastases to liver [Not Recovered/Not Resolved]
  - Tumour necrosis [Unknown]
